FAERS Safety Report 18897888 (Version 1)
Quarter: 2021Q1

REPORT INFORMATION
  Report Type: Other
  Country: FR (occurrence: FR)
  Receive Date: 20210216
  Receipt Date: 20210216
  Transmission Date: 20210420
  Serious: Yes (Hospitalization)
  Sender: FDA-Public Use
  Company Number: FR-APOTEX-2021AP002617

PATIENT
  Age: 23 Year
  Sex: Female

DRUGS (4)
  1. LAMICTAL [Suspect]
     Active Substance: LAMOTRIGINE
     Indication: TOXICITY TO VARIOUS AGENTS
     Dosage: 7 DOSAGE FORM, (A FLASK)
     Route: 048
     Dates: start: 20210113, end: 20210113
  2. TERCIAN [Suspect]
     Active Substance: CYAMEMAZINE
     Indication: OBSESSIVE-COMPULSIVE DISORDER
     Dosage: UNK
     Route: 048
  3. PAROXETINE. [Suspect]
     Active Substance: PAROXETINE
     Indication: DEPRESSION
     Dosage: UNK
     Route: 048
  4. MIDAZOLAM. [Suspect]
     Active Substance: MIDAZOLAM
     Indication: TOXICITY TO VARIOUS AGENTS
     Dosage: UNK (A FLASK)
     Route: 048
     Dates: start: 20210113, end: 20210113

REACTIONS (1)
  - Hypotension [Not Recovered/Not Resolved]

NARRATIVE: CASE EVENT DATE: 20210113
